FAERS Safety Report 17962227 (Version 1)
Quarter: 2020Q2

REPORT INFORMATION
  Report Type: Spontaneous
  Country: GB (occurrence: GB)
  Receive Date: 20200630
  Receipt Date: 20200630
  Transmission Date: 20200714
  Serious: Yes (Life-Threatening, Hospitalization)
  Sender: FDA-Public Use
  Company Number: GB-MYLANLABS-2020M1058276

PATIENT
  Age: 19 Year
  Sex: Female

DRUGS (4)
  1. ECULIZUMAB [Concomitant]
     Active Substance: ECULIZUMAB
     Indication: HAEMOLYTIC URAEMIC SYNDROME
  2. EPINEPHRINE. [Suspect]
     Active Substance: EPINEPHRINE
     Indication: CARDIOGENIC SHOCK
     Dosage: 0.1 MICROGRAM/KILOGRAM, QMINUTE
     Route: 065
  3. MILRINONE [Suspect]
     Active Substance: MILRINONE
     Indication: CARDIOGENIC SHOCK
     Dosage: 0.3 MICROGRAM/KILOGRAM, QMINUTE
     Route: 065
  4. ECULIZUMAB [Concomitant]
     Active Substance: ECULIZUMAB
     Indication: GASTROENTERITIS ESCHERICHIA COLI
     Dosage: INITIATED ON DAY 2 OF VA-ECMO + RECEIVED 3 FURTHER DOSES OF ECULIZUMAB AT WEEKLY INTERVALS
     Route: 065

REACTIONS (1)
  - Drug ineffective [Unknown]
